FAERS Safety Report 25398838 (Version 1)
Quarter: 2025Q2

REPORT INFORMATION
  Report Type: Spontaneous
  Country: CN (occurrence: CN)
  Receive Date: 20250604
  Receipt Date: 20250604
  Transmission Date: 20250717
  Serious: Yes (Hospitalization, Other)
  Sender: Haleon PLC
  Company Number: CN-HALEON-2245437

PATIENT
  Age: 32 Year
  Sex: Male
  Weight: 80 kg

DRUGS (2)
  1. IBUPROFEN [Suspect]
     Active Substance: IBUPROFEN
     Indication: Nasopharyngitis
     Dosage: SUSTAINED-RELEASE CAPSULES
     Route: 048
     Dates: start: 20250515, end: 20250515
  2. OSELTAMIVIR PHOSPHATE [Suspect]
     Active Substance: OSELTAMIVIR PHOSPHATE
     Indication: Nasopharyngitis
     Route: 048
     Dates: start: 20250514, end: 20250514

REACTIONS (12)
  - Toxic epidermal necrolysis [Recovering/Resolving]
  - Erythema multiforme [Recovering/Resolving]
  - Scrotum erosion [Recovering/Resolving]
  - Erythema [Recovering/Resolving]
  - Oral mucosa erosion [Recovering/Resolving]
  - Blister [Recovering/Resolving]
  - Body temperature increased [Recovering/Resolving]
  - Skin lesion [Recovering/Resolving]
  - Pain in extremity [Recovering/Resolving]
  - Effusion [Recovering/Resolving]
  - Oral pain [Recovering/Resolving]
  - Scrotal pain [Recovering/Resolving]

NARRATIVE: CASE EVENT DATE: 20250515
